FAERS Safety Report 9501812 (Version 1)
Quarter: 2013Q3

REPORT INFORMATION
  Report Type: Spontaneous
  Country: ZA (occurrence: ZA)
  Receive Date: 20130905
  Receipt Date: 20130905
  Transmission Date: 20140515
  Serious: Yes (Hospitalization)
  Sender: FDA-Public Use
  Company Number: ZA-ASTRAZENECA-2013SE66537

PATIENT
  Age: 578 Month
  Sex: Male

DRUGS (3)
  1. TEN-BLOKA [Suspect]
     Indication: HYPERTENSION
     Route: 048
  2. ALTOSEC [Suspect]
     Indication: GASTROOESOPHAGEAL REFLUX DISEASE
     Route: 048
  3. LOMANOR [Concomitant]
     Route: 048

REACTIONS (2)
  - Blood potassium decreased [Recovered/Resolved]
  - Blood sodium decreased [Recovered/Resolved]
